FAERS Safety Report 14069323 (Version 2)
Quarter: 2017Q4

REPORT INFORMATION
  Report Type: Spontaneous
  Country: FR (occurrence: FR)
  Receive Date: 20171010
  Receipt Date: 20171107
  Transmission Date: 20180321
  Serious: Yes (Hospitalization)
  Sender: FDA-Public Use
  Company Number: FR-PFIZER INC-2017431230

PATIENT
  Age: 89 Year
  Sex: Female

DRUGS (7)
  1. RISPERDAL [Interacting]
     Active Substance: RISPERIDONE
     Indication: COGNITIVE DISORDER
     Dosage: 0.5 MG, 2X/DAY
     Route: 048
     Dates: start: 201705, end: 20170526
  2. SERESTA [Interacting]
     Active Substance: OXAZEPAM
     Indication: DEPRESSION
     Dosage: 5 MG, 2X/DAY
     Route: 048
     Dates: start: 201705, end: 20170526
  3. BISOPROLOL [Concomitant]
     Active Substance: BISOPROLOL
     Dosage: 2.5 MG, 1X/DAY
     Route: 048
  4. LYRICA [Suspect]
     Active Substance: PREGABALIN
     Indication: PAIN
     Dosage: 25 MG, 3X/DAY
     Route: 048
     Dates: start: 201705, end: 20170526
  5. PAROXETINE HCL [Concomitant]
     Active Substance: PAROXETINE HYDROCHLORIDE
     Dosage: 20 MG, 1X/DAY
     Route: 048
  6. DEDROGYL [Concomitant]
     Active Substance: CALCIFEDIOL
     Dosage: 4 GTT, 1X/DAY
     Route: 048
  7. PARACETAMOL [Concomitant]
     Active Substance: ACETAMINOPHEN
     Dosage: 1 G, 3X/DAY
     Route: 048

REACTIONS (5)
  - Drug interaction [Recovered/Resolved]
  - Loss of consciousness [Recovered/Resolved]
  - Confusional state [Recovered/Resolved]
  - Fall [Recovered/Resolved]
  - Head injury [Recovered/Resolved]

NARRATIVE: CASE EVENT DATE: 20170526
